FAERS Safety Report 4689726-2 (Version None)
Quarter: 2005Q2

REPORT INFORMATION
  Report Type: 
  Country: None (occurrence: None)
  Receive Date: 20050608
  Receipt Date: 20050323
  Transmission Date: 20051028
  Serious: No
  Sender: FDA-Public Use
  Company Number: 2005-BP-05023BP

PATIENT
  Sex: Female

DRUGS (5)
  1. SPIRIVA [Suspect]
     Dosage: 18 MCG (18 MCG, QD), IH
     Route: 055
     Dates: start: 20040701
  2. ATENOLOL [Concomitant]
  3. COUMADIN [Concomitant]
  4. CALCIUM GLUCONATE [Concomitant]
  5. FLONASE [Concomitant]

REACTIONS (1)
  - ATRIAL FIBRILLATION [None]
